FAERS Safety Report 5264234-9 (Version None)
Quarter: 2007Q1

REPORT INFORMATION
  Report Type: 
  Country: None (occurrence: None)
  Receive Date: 20070313
  Receipt Date: 20070301
  Transmission Date: 20070707
  Serious: Yes (Other)
  Sender: FDA-Public Use
  Company Number: US-PFIZER INC-2007016876

PATIENT
  Sex: Female
  Weight: 83 kg

DRUGS (8)
  1. LYRICA [Suspect]
     Indication: NERVE INJURY
  2. PREDNISONE [Suspect]
  3. LISINOPRIL [Concomitant]
  4. ZETIA [Concomitant]
  5. NEXIUM [Concomitant]
  6. FISH OIL [Concomitant]
  7. RED YEAST RICE [Concomitant]
  8. MELOXICAM [Concomitant]

REACTIONS (6)
  - BLOOD CHOLESTEROL INCREASED [None]
  - DIZZINESS [None]
  - HYPERTENSION [None]
  - PHARYNGEAL OEDEMA [None]
  - SOMNOLENCE [None]
  - SPEECH DISORDER [None]
